FAERS Safety Report 8872651 (Version 1)
Quarter: 2012Q4

REPORT INFORMATION
  Report Type: 
  Country: FR (occurrence: FR)
  Receive Date: 20121030
  Receipt Date: 20121030
  Transmission Date: 20130627
  Serious: Yes (Death, Other)
  Sender: FDA-Public Use
  Company Number: FR-ROCHE-1146768

PATIENT
  Age: 65 Year
  Sex: Male

DRUGS (7)
  1. MABTHERA [Suspect]
     Indication: RHEUMATOID ARTHRITIS
     Dosage: total 4 infusions in 1 week
     Route: 042
     Dates: start: 20111129, end: 20111220
  2. ENBREL [Suspect]
     Indication: RHEUMATOID ARTHRITIS
     Route: 065
     Dates: start: 2008, end: 200904
  3. NOVATREX [Suspect]
     Indication: RHEUMATOID ARTHRITIS
     Route: 048
     Dates: start: 2002, end: 20120601
  4. METHOTREXATE [Suspect]
     Indication: RHEUMATOID ARTHRITIS
     Route: 048
     Dates: start: 20120601, end: 20120716
  5. CORTANCYL [Suspect]
     Indication: RHEUMATOID ARTHRITIS
     Route: 048
     Dates: start: 2002
  6. HYDREA [Suspect]
     Indication: RHEUMATOID ARTHRITIS
     Route: 048
     Dates: start: 20110721, end: 20120716
  7. AUGMENTIN [Concomitant]
     Indication: SINUSITIS
     Route: 048
     Dates: start: 20120702, end: 20120707

REACTIONS (16)
  - Myocarditis [Fatal]
  - Cardiac arrest [Fatal]
  - Cardiogenic shock [Unknown]
  - Cardiac disorder [Unknown]
  - Pleural effusion [Unknown]
  - Respiratory distress [Unknown]
  - Haemoptysis [Unknown]
  - Hyperthermia [Unknown]
  - Hepatocellular injury [Unknown]
  - Cholestasis [Unknown]
  - Lymphopenia [Unknown]
  - Hyponatraemia [Unknown]
  - Morganella infection [Unknown]
  - Interstitial lung disease [Unknown]
  - Thrombocytopenia [Unknown]
  - Drug ineffective [Unknown]
